FAERS Safety Report 16236967 (Version 2)
Quarter: 2019Q2

REPORT INFORMATION
  Report Type: Report from Study
  Country: US (occurrence: US)
  Receive Date: 20190425
  Receipt Date: 20190515
  Transmission Date: 20190711
  Serious: Yes (Other)
  Sender: FDA-Public Use
  Company Number: US-TEVA-2019-US-1041249

PATIENT

DRUGS (4)
  1. CISPLATIN. [Suspect]
     Active Substance: CISPLATIN
     Indication: ANAL CANCER
     Dosage: ADMINISTERED OVER 30 MINUTES ON DAY 1 EVERY 14 DAYS
     Route: 065
  2. LEUCOVORIN. [Suspect]
     Active Substance: LEUCOVORIN
     Indication: ANAL CANCER
     Dosage: ADMINISTERED ON DAY 1 EVERY 14 DAYS
     Route: 065
  3. FLUOROURACIL. [Suspect]
     Active Substance: FLUOROURACIL
     Indication: ANAL CANCER
     Dosage: ADMINISTERED ON DAY 1 EVERY 14 DAYS
     Route: 050
  4. FLUOROURACIL. [Suspect]
     Active Substance: FLUOROURACIL
     Indication: ANAL CANCER
     Dosage: ADMINISTERED ON DAYS 1 AND 2 EVERY 14 DAYS
     Route: 041

REACTIONS (1)
  - Febrile neutropenia [Unknown]
